FAERS Safety Report 7024405-8 (Version None)
Quarter: 2010Q3

REPORT INFORMATION
  Report Type: 
  Country: None (occurrence: None)
  Receive Date: 20100929
  Receipt Date: 20100917
  Transmission Date: 20110219
  Serious: Yes (Life-Threatening, Other)
  Sender: FDA-Public Use
  Company Number: 1000016442

PATIENT
  Age: 89 Year
  Sex: Female
  Weight: 70 kg

DRUGS (3)
  1. CITALOPRAM HYDROBROMIDE [Suspect]
     Dosage: ORAL
     Route: 048
     Dates: start: 20100917, end: 20100917
  2. TRICYCLIC ANTIDEPRESSANTS (TRICYCLIC ANTIDEPRESSANTS) (TABLETS) [Suspect]
     Dosage: ORAL
     Dates: start: 20100917, end: 20100917
  3. BENZODIAZEPINE DERITATIVES (BENZODIAPINE DERIVATIVES) (TABLETS) [Suspect]
     Dosage: ORAL
     Route: 048
     Dates: start: 20100917, end: 20100917

REACTIONS (7)
  - BUNDLE BRANCH BLOCK LEFT [None]
  - COMA [None]
  - ELECTROCARDIOGRAM QT PROLONGED [None]
  - HYPOTENSION [None]
  - HYPOTHERMIA [None]
  - MULTIPLE DRUG OVERDOSE INTENTIONAL [None]
  - SUICIDE ATTEMPT [None]
